FAERS Safety Report 9529798 (Version 1)
Quarter: 2013Q3

REPORT INFORMATION
  Report Type: Spontaneous
  Country: FR (occurrence: FR)
  Receive Date: 20130917
  Receipt Date: 20130917
  Transmission Date: 20140515
  Serious: Yes (Hospitalization)
  Sender: FDA-Public Use
  Company Number: FR-TEVA-430908ISR

PATIENT
  Age: 67 Year
  Sex: Male

DRUGS (8)
  1. ETOPOSIDE TEVA [Suspect]
     Indication: B-CELL LYMPHOMA STAGE III
     Dosage: 100 MG/M2 DAILY;
     Route: 042
     Dates: start: 20130725, end: 20130727
  2. HOLOXAN [Suspect]
     Indication: B-CELL LYMPHOMA STAGE III
     Dosage: 5 G/M2
     Route: 042
     Dates: start: 20130726, end: 20130726
  3. CARBOPLATINE HOSPIRA [Suspect]
     Indication: B-CELL LYMPHOMA STAGE III
     Dosage: 365 MILLIGRAM DAILY;
     Route: 042
     Dates: start: 20130726, end: 20130726
  4. MABTHERA [Suspect]
     Indication: B-CELL LYMPHOMA STAGE III
     Dosage: 375 MG/M2 DAILY;
     Route: 042
     Dates: start: 20130725, end: 20130725
  5. UROMITEXAN [Suspect]
     Route: 042
     Dates: start: 20130726, end: 20130726
  6. FASTURTEC [Suspect]
     Indication: PROPHYLAXIS
     Route: 042
     Dates: start: 20130726, end: 20130726
  7. CEFTRIAXONE PANPHARMA [Suspect]
     Route: 042
     Dates: start: 20130726, end: 20130729
  8. AMIKACINE MYLAN [Suspect]
     Route: 042
     Dates: start: 20130726, end: 20130729

REACTIONS (1)
  - Encephalopathy [Recovered/Resolved]
